FAERS Safety Report 5953236-2 (Version None)
Quarter: 2008Q4

REPORT INFORMATION
  Report Type: 
  Country: None (occurrence: None)
  Receive Date: 20081114
  Receipt Date: 20081104
  Transmission Date: 20090506
  Serious: Yes (Other)
  Sender: FDA-Public Use
  Company Number: GB-ROCHE-595717

PATIENT
  Sex: Female
  Weight: 81.6 kg

DRUGS (5)
  1. ORLISTAT [Suspect]
     Indication: OBESITY
     Route: 048
     Dates: start: 20080501
  2. PRAVASTATIN [Concomitant]
     Route: 048
  3. AMITRIPTYLINE HCL [Concomitant]
     Indication: FIBROMYALGIA
     Route: 048
  4. BENDROFLUAZIDE [Concomitant]
     Indication: BLOOD PRESSURE
     Dosage: DRUG REPORTED AS BENDROFLUIZIDE.
     Route: 048
  5. 1 CONCOMITANT DRUG [Concomitant]
     Indication: BACK PAIN
     Dosage: DRUG REPORTED AS SULPHADOL.
     Route: 048

REACTIONS (1)
  - NEOPLASM MALIGNANT [None]
